FAERS Safety Report 4549588-0 (Version None)
Quarter: 2005Q1

REPORT INFORMATION
  Report Type: 
  Country: None (occurrence: None)
  Receive Date: 20050111
  Receipt Date: 20041227
  Transmission Date: 20050727
  Serious: Yes (Hospitalization)
  Sender: FDA-Public Use
  Company Number: BE-JNJFOC-20041006180

PATIENT
  Age: 47 Year
  Sex: Female

DRUGS (11)
  1. PROPULSID [Suspect]
     Route: 049
     Dates: start: 20031023, end: 20041001
  2. LACTULOSE [Concomitant]
  3. PROZAC [Concomitant]
     Indication: DEPRESSION
     Route: 049
  4. XANAX [Concomitant]
     Indication: DEPRESSION
     Route: 049
  5. ZESTRIL [Concomitant]
     Route: 049
  6. PLAVIX [Concomitant]
     Route: 049
  7. LESCOL [Concomitant]
     Indication: HYPERCHOLESTEROLAEMIA
     Route: 049
  8. PARIET [Concomitant]
     Indication: GASTRIC DISORDER
     Route: 049
  9. SERTRALINE HCL [Concomitant]
     Indication: DEPRESSION
     Route: 049
  10. RISPERDAL [Concomitant]
     Indication: DEPRESSION
     Dosage: STARTED BEFORE 2003
     Route: 049
  11. CORUNA [Concomitant]
     Route: 049

REACTIONS (1)
  - MENTAL DISORDER [None]
